FAERS Safety Report 9434955 (Version 1)
Quarter: 2013Q3

REPORT INFORMATION
  Report Type: Spontaneous
  Country: US (occurrence: US)
  Receive Date: 20130801
  Receipt Date: 20130801
  Transmission Date: 20140515
  Serious: Yes (Other)
  Sender: FDA-Public Use
  Company Number: US-PFIZER INC-2010024245

PATIENT
  Age: 67 Year
  Sex: Male
  Weight: 95.24 kg

DRUGS (10)
  1. ZITHROMAX [Suspect]
     Indication: VIRAL INFECTION
     Dosage: 250 MG, 2X/DAY
     Dates: start: 20100213, end: 20100213
  2. ZITHROMAX [Suspect]
     Dosage: 250 MG, 1X/DAY
     Dates: start: 20100214, end: 20100217
  3. OMEPRAZOLE [Concomitant]
     Dosage: 20 MG, 1X/DAY
  4. DIOVANE [Concomitant]
     Dosage: 160 MG, 1X/DAY
  5. ZOCOR [Concomitant]
     Dosage: 40 MG, 1X/DAY
  6. TOPROL [Concomitant]
     Dosage: 25 MG, 2X/DAY
  7. NEXIUM [Concomitant]
     Dosage: 500 MG, 1X/DAY
  8. ACETYLSALICYLIC ACID [Concomitant]
     Dosage: 325 MG, 1X/DAY
  9. IMDUR [Concomitant]
     Dosage: 60 MG, 1X/DAY
  10. CENTRUM SILVER [Concomitant]
     Dosage: UNK

REACTIONS (1)
  - Hepatic enzyme increased [Not Recovered/Not Resolved]
